FAERS Safety Report 4797623-7 (Version None)
Quarter: 2005Q4

REPORT INFORMATION
  Report Type: 
  Country: None (occurrence: None)
  Receive Date: 20051013
  Receipt Date: 20051005
  Transmission Date: 20060501
  Serious: Yes (Hospitalization)
  Sender: FDA-Public Use
  Company Number: DK-MERCK-0510DNK00004

PATIENT
  Age: 50 Year
  Sex: Female

DRUGS (4)
  1. VIOXX [Suspect]
     Indication: MYALGIA
     Route: 048
     Dates: start: 20000210, end: 20040901
  2. BENDROFLUMETHIAZIDE [Concomitant]
     Route: 048
     Dates: start: 20031103
  3. DIPYRIDAMOLE [Concomitant]
     Route: 048
     Dates: start: 20031015
  4. CHLORGUANIDE HYDROCHLORIDE AND ATOVAQUONE [Concomitant]
     Route: 048
     Dates: start: 20000228, end: 20000324

REACTIONS (1)
  - CEREBRAL INFARCTION [None]
